FAERS Safety Report 9928787 (Version 2)
Quarter: 2014Q1

REPORT INFORMATION
  Report Type: Spontaneous
  Country: IT (occurrence: None)
  Receive Date: 20140225
  Receipt Date: 20140227
  Transmission Date: 20141002
  Serious: Yes (Hospitalization)
  Sender: FDA-Public Use
  Company Number: 2014MPI00121

PATIENT
  Age: 27 Year
  Sex: Male
  Weight: 70 kg

DRUGS (3)
  1. ADCETRIS [Suspect]
     Indication: HODGKIN^S DISEASE
     Route: 042
     Dates: start: 20130529, end: 20131014
  2. VAXIGRIP [Suspect]
     Indication: ANTIVIRAL PROPHYLAXIS
     Route: 058
     Dates: start: 20131018, end: 20131018
  3. ISMIGEN (HAEMOPHILUS INFLUENZAE B, KLEBSIELLA OZAENAE, KLEBSIELLA PNEUMONIAE, NEISSERIA CATARRHALIS, STAPHYLOCOCCUSAUREUS, STREPTOCOCCUS PNEUMONIAE, STREPTOCOCCUS PYOGENES, STREPTOCOCCUS VIRIDANS) [Concomitant]

REACTIONS (2)
  - Guillain-Barre syndrome [None]
  - Peripheral sensory neuropathy [None]
